FAERS Safety Report 11054299 (Version 4)
Quarter: 2015Q3

REPORT INFORMATION
  Report Type: Spontaneous
  Country: US (occurrence: US)
  Receive Date: 20150422
  Receipt Date: 20150706
  Transmission Date: 20151125
  Serious: No
  Sender: FDA-Public Use
  Company Number: US-BAYER-2015-157548

PATIENT
  Age: 17 Year
  Sex: Female
  Weight: 63 kg

DRUGS (2)
  1. SKYLA [Suspect]
     Active Substance: LEVONORGESTREL
     Indication: CONTRACEPTION
     Dosage: 14 MCG/24HR, CONT
     Route: 015
     Dates: start: 20150302, end: 20150416
  2. SKYLA [Suspect]
     Active Substance: LEVONORGESTREL
     Indication: MIGRAINE

REACTIONS (4)
  - Pregnancy with contraceptive device [None]
  - Menstruation delayed [None]
  - Medical device discomfort [None]
  - Drug ineffective [None]

NARRATIVE: CASE EVENT DATE: 201503
